FAERS Safety Report 4277825-9 (Version None)
Quarter: 2004Q1

REPORT INFORMATION
  Report Type: 
  Country: None (occurrence: None)
  Receive Date: 20040121
  Receipt Date: 20040108
  Transmission Date: 20041129
  Serious: No
  Sender: FDA-Public Use
  Company Number: 2003SE03063

PATIENT
  Age: 59 Year
  Sex: Female
  Weight: 50 kg

DRUGS (2)
  1. NEXIUM [Suspect]
     Indication: REFLUX OESOPHAGITIS
     Dosage: 40 MG DAILY PO
     Route: 048
     Dates: start: 20021201
  2. ADALAT [Suspect]
     Dosage: 60 MG DAILY
     Dates: start: 20020124

REACTIONS (3)
  - DRUG INTERACTION [None]
  - OEDEMA PERIPHERAL [None]
  - VENOUS INSUFFICIENCY [None]
